FAERS Safety Report 12094698 (Version 2)
Quarter: 2016Q1

REPORT INFORMATION
  Report Type: Spontaneous
  Country: US (occurrence: US)
  Receive Date: 20160219
  Receipt Date: 20160309
  Transmission Date: 20160526
  Serious: Yes (Other)
  Sender: FDA-Public Use
  Company Number: US-PFIZER INC-2016094751

PATIENT
  Age: 69 Year
  Sex: Male
  Weight: 97.52 kg

DRUGS (5)
  1. ZESTRIL [Concomitant]
     Active Substance: LISINOPRIL
     Indication: HYPERTENSION
     Dosage: ONCE A DAY
     Route: 048
  2. VIAGRA [Suspect]
     Active Substance: SILDENAFIL CITRATE
     Indication: ERECTILE DYSFUNCTION
     Dosage: 50 MG, WEEKLY (ONE 50MG TABLET ONCE A WEEK)
     Route: 048
  3. NAPROXEN. [Concomitant]
     Active Substance: NAPROXEN
     Indication: PAIN
     Dosage: ONE 500 MG TABLET BY MOUTH A COUPLE TIMES A WEEK, SOMETIMES DAILY
     Route: 048
  4. PREVACID [Concomitant]
     Active Substance: LANSOPRAZOLE
     Indication: GASTROOESOPHAGEAL REFLUX DISEASE
     Dosage: ONCE A DAY
     Route: 048
  5. CELEBREX [Concomitant]
     Active Substance: CELECOXIB
     Indication: BACK DISORDER
     Dosage: UNK
     Route: 048

REACTIONS (13)
  - Brain neoplasm [Unknown]
  - Speech disorder [Unknown]
  - Vision blurred [Unknown]
  - Flushing [Unknown]
  - Trigeminal neuralgia [Unknown]
  - Hemiplegia [Unknown]
  - Deafness unilateral [Unknown]
  - Mental impairment [Unknown]
  - Dry eye [Unknown]
  - Dizziness [Unknown]
  - Neuropathy peripheral [Unknown]
  - Eye disorder [Unknown]
  - Neuralgia [Unknown]

NARRATIVE: CASE EVENT DATE: 201105
